FAERS Safety Report 15546707 (Version 1)
Quarter: 2018Q4

REPORT INFORMATION
  Report Type: Spontaneous
  Country: US (occurrence: US)
  Receive Date: 20181024
  Receipt Date: 20181024
  Transmission Date: 20190205
  Serious: No
  Sender: FDA-Public Use
  Company Number: None

PATIENT
  Sex: Female
  Weight: 67.5 kg

DRUGS (20)
  1. PREDNISONE. [Concomitant]
     Active Substance: PREDNISONE
  2. HYDROCHLOROTHIAZIDE. [Concomitant]
     Active Substance: HYDROCHLOROTHIAZIDE
  3. CO-Q 10 [Concomitant]
     Active Substance: UBIDECARENONE
  4. MAGNESIUM [Concomitant]
     Active Substance: MAGNESIUM
  5. MELATONIN [Concomitant]
     Active Substance: MELATONIN
  6. POTASSIUM [Concomitant]
     Active Substance: POTASSIUM
  7. MULTIVITAMIN [Concomitant]
     Active Substance: VITAMINS
  8. COMPLEX B [Concomitant]
     Active Substance: CALCIUM PANTOTHENATE\CYANOCOBALAMIN\NIACINAMIDE\PYRIDOXINE HYDROCHLORIDE\RIBOFLAVIN\THIAMINE MONONITRATE
  9. HYDROCODONE/ TYLENOL [Concomitant]
  10. ATIVAN [Concomitant]
     Active Substance: LORAZEPAM
  11. TORADOL [Concomitant]
     Active Substance: KETOROLAC TROMETHAMINE
  12. METROPOLO SUCC ER [Concomitant]
  13. RIZATRIPTAN. [Concomitant]
     Active Substance: RIZATRIPTAN
  14. FLEXERIL [Concomitant]
     Active Substance: CYCLOBENZAPRINE HYDROCHLORIDE
  15. HORMONE CREAM [Concomitant]
  16. AIMOVIG [Suspect]
     Active Substance: ERENUMAB-AOOE
     Indication: MIGRAINE
     Dosage: ?          QUANTITY:2 INJECTION(S);OTHER FREQUENCY:MONTHLY;OTHER ROUTE:INJECTIONS?
  17. CALCIUM [Concomitant]
     Active Substance: CALCIUM
  18. ASA [Concomitant]
     Active Substance: ASPIRIN
  19. VITAMIN D [Concomitant]
     Active Substance: CHOLECALCIFEROL
  20. VITAMIN E [Concomitant]
     Active Substance: .ALPHA.-TOCOPHEROL

REACTIONS (4)
  - Palpitations [None]
  - Blood pressure fluctuation [None]
  - Blood pressure increased [None]
  - Chest discomfort [None]
